FAERS Safety Report 10091325 (Version 1)
Quarter: 2014Q2

REPORT INFORMATION
  Report Type: Spontaneous
  Country: US (occurrence: US)
  Receive Date: 20140421
  Receipt Date: 20140421
  Transmission Date: 20141212
  Serious: No
  Sender: FDA-Public Use
  Company Number: US-GILEAD-2013-0067523

PATIENT
  Age: 79 Year
  Sex: Female

DRUGS (3)
  1. LETAIRIS [Suspect]
     Indication: COR PULMONALE CHRONIC
     Dosage: 5 MG, QD
     Route: 048
     Dates: start: 20121228
  2. TYVASO [Suspect]
  3. REVATIO [Concomitant]

REACTIONS (4)
  - Back pain [Unknown]
  - Bronchitis [Unknown]
  - Influenza [Unknown]
  - Nausea [Unknown]
